FAERS Safety Report 12554532 (Version 1)
Quarter: 2016Q3

REPORT INFORMATION
  Report Type: Spontaneous
  Country: US (occurrence: US)
  Receive Date: 20160713
  Receipt Date: 20160713
  Transmission Date: 20161109
  Serious: No
  Sender: FDA-Public Use
  Company Number: US-ROCHE-1696976

PATIENT
  Sex: Female

DRUGS (2)
  1. BONIVA [Suspect]
     Active Substance: IBANDRONATE SODIUM
     Indication: OSTEOPOROSIS
     Route: 065
     Dates: start: 20160116
  2. BONIVA [Suspect]
     Active Substance: IBANDRONATE SODIUM
     Indication: ARTHRITIS

REACTIONS (1)
  - Pain [Not Recovered/Not Resolved]
